FAERS Safety Report 16887242 (Version 1)
Quarter: 2019Q4

REPORT INFORMATION
  Report Type: Spontaneous
  Country: CN (occurrence: CN)
  Receive Date: 20191004
  Receipt Date: 20191004
  Transmission Date: 20200122
  Serious: Yes (Life-Threatening)
  Sender: FDA-Public Use
  Company Number: CN-JNJFOC-20190931179

PATIENT
  Age: 44 Year
  Sex: Female
  Weight: 57 kg

DRUGS (1)
  1. REMICADE [Suspect]
     Active Substance: INFLIXIMAB
     Indication: CROHN^S DISEASE
     Route: 042
     Dates: start: 20190918

REACTIONS (10)
  - Chest discomfort [Recovering/Resolving]
  - Pulse absent [Recovering/Resolving]
  - Face oedema [Recovering/Resolving]
  - Pruritus [Recovering/Resolving]
  - Blood pressure fluctuation [Recovering/Resolving]
  - Heart rate decreased [Recovering/Resolving]
  - Infusion related reaction [Recovering/Resolving]
  - Oxygen saturation decreased [Recovering/Resolving]
  - Dyspnoea [Recovering/Resolving]
  - Chills [Recovering/Resolving]

NARRATIVE: CASE EVENT DATE: 20190918
